FAERS Safety Report 15899885 (Version 1)
Quarter: 2019Q1

REPORT INFORMATION
  Report Type: Spontaneous
  Country: IT (occurrence: IT)
  Receive Date: 20190201
  Receipt Date: 20190201
  Transmission Date: 20190417
  Serious: Yes (Other)
  Sender: FDA-Public Use
  Company Number: IT-TEVA-2019-IT-1005994

PATIENT
  Age: 65 Year
  Sex: Male

DRUGS (8)
  1. LENIZAK [Concomitant]
     Active Substance: DEXKETOPROFEN\TRAMADOL
  2. DOXIFLURIDINE [Suspect]
     Active Substance: DOXIFLURIDINE
     Indication: RECTAL CANCER
     Route: 042
     Dates: start: 20180401, end: 20181001
  3. ASACOL [Concomitant]
     Active Substance: MESALAMINE
     Route: 048
  4. YOVIS [Concomitant]
  5. BEVACIZUMAB. [Suspect]
     Active Substance: BEVACIZUMAB
     Indication: RECTAL CANCER
     Route: 042
     Dates: start: 20180401, end: 20181101
  6. FENTANYL. [Concomitant]
     Active Substance: FENTANYL
  7. OXALIPLATIN. [Suspect]
     Active Substance: OXALIPLATIN
     Indication: RECTAL CANCER
     Route: 042
     Dates: start: 20180401, end: 20181001
  8. CONTRAMAL 100 MG/ML GOCCE ORALI SOLUZIONE CON CONTAGOCCE [Concomitant]
     Active Substance: TRAMADOL HYDROCHLORIDE

REACTIONS (2)
  - Neuropathy peripheral [Unknown]
  - Neoplasm progression [Unknown]

NARRATIVE: CASE EVENT DATE: 20181101
